FAERS Safety Report 11533312 (Version 1)
Quarter: 2015Q3

REPORT INFORMATION
  Report Type: Spontaneous
  Country: US (occurrence: US)
  Receive Date: 20150921
  Receipt Date: 20150921
  Transmission Date: 20151125
  Serious: No
  Sender: FDA-Public Use
  Company Number: US-ALLERGAN-1419107US

PATIENT
  Age: 3 Decade
  Sex: Female

DRUGS (1)
  1. LASTACAFT [Suspect]
     Active Substance: ALCAFTADINE
     Indication: EYE ALLERGY
     Route: 047

REACTIONS (2)
  - Conjunctivitis [Unknown]
  - Ocular hyperaemia [Unknown]
